FAERS Safety Report 20735324 (Version 9)
Quarter: 2022Q3

REPORT INFORMATION
  Report Type: Report from Study
  Country: US (occurrence: US)
  Receive Date: 20220421
  Receipt Date: 20220929
  Transmission Date: 20221026
  Serious: Yes (Other)
  Sender: FDA-Public Use
  Company Number: US-NOVARTISTESTPH-NVSC2022US091893

PATIENT
  Sex: Female

DRUGS (1)
  1. ENTRESTO [Suspect]
     Active Substance: SACUBITRIL\VALSARTAN
     Indication: Product used for unknown indication
     Dosage: 1 DOSAGE FORM (24/26MG)
     Route: 065

REACTIONS (13)
  - Thrombosis [Unknown]
  - Pericardial effusion [Unknown]
  - Pulmonary hypertension [Unknown]
  - Fibrin D dimer increased [Unknown]
  - Fear [Unknown]
  - Weight decreased [Unknown]
  - Flatulence [Unknown]
  - Exercise tolerance decreased [Unknown]
  - Feeling abnormal [Unknown]
  - Pleural effusion [Unknown]
  - Heart rate decreased [Unknown]
  - Hypotension [Unknown]
  - Fluid retention [Unknown]
